FAERS Safety Report 15643570 (Version 1)
Quarter: 2018Q4

REPORT INFORMATION
  Report Type: Spontaneous
  Country: ID (occurrence: ID)
  Receive Date: 20181121
  Receipt Date: 20181121
  Transmission Date: 20190205
  Serious: Yes (Death)
  Sender: FDA-Public Use
  Company Number: ID-IMPAX LABORATORIES, LLC-2018-IPXL-03864

PATIENT
  Age: 28 Year
  Sex: Female

DRUGS (9)
  1. PYRIMETHAMINE [Suspect]
     Active Substance: PYRIMETHAMINE
     Indication: CEREBRAL TOXOPLASMOSIS
     Dosage: 200 MILLIGRAM ONCE
     Route: 065
  2. DEXAMETHASONE. [Suspect]
     Active Substance: DEXAMETHASONE
     Indication: CEREBRAL TOXOPLASMOSIS
     Dosage: 5 MILLIGRAM, 4 /DAY
     Route: 065
  3. HALOPERIDOL. [Suspect]
     Active Substance: HALOPERIDOL
     Indication: CEREBRAL TOXOPLASMOSIS
     Dosage: UNK
     Route: 065
  4. CLINDAMYCIN. [Suspect]
     Active Substance: CLINDAMYCIN
     Indication: CEREBRAL TOXOPLASMOSIS
     Dosage: 600 MILLIGRAM, 4 /DAY
     Route: 065
  5. OMEPRAZOLE DELAYED RELEASE [Suspect]
     Active Substance: OMEPRAZOLE
     Indication: PRODUCT USED FOR UNKNOWN INDICATION
     Dosage: 40 MILLIGRAM, 2 /DAY
     Route: 065
  6. PYRIMETHAMINE [Suspect]
     Active Substance: PYRIMETHAMINE
     Dosage: 25 MILLIGRAM, 3 /DAY
     Route: 065
  7. VITAMIN B6 [Suspect]
     Active Substance: PYRIDOXINE HYDROCHLORIDE
     Indication: PRODUCT USED FOR UNKNOWN INDICATION
     Dosage: 10 MILLIGRAM, 3 /DAY
     Route: 065
  8. GABAPENTIN. [Suspect]
     Active Substance: GABAPENTIN
     Indication: CEREBRAL TOXOPLASMOSIS
     Dosage: UNK
     Route: 065
  9. OFLOXACIN. [Suspect]
     Active Substance: OFLOXACIN
     Indication: CEREBRAL TOXOPLASMOSIS
     Dosage: 400 MILLIGRAM, DAILY
     Route: 065

REACTIONS (2)
  - Status epilepticus [Fatal]
  - Cerebral toxoplasmosis [Fatal]
